FAERS Safety Report 5325434-2 (Version None)
Quarter: 2007Q2

REPORT INFORMATION
  Report Type: 
  Country: None (occurrence: None)
  Receive Date: 20070515
  Receipt Date: 20070503
  Transmission Date: 20071010
  Serious: Yes (Hospitalization, Other)
  Sender: FDA-Public Use
  Company Number: US-AMGEN-STX215405

PATIENT
  Sex: Female
  Weight: 88.1 kg

DRUGS (1)
  1. ENBREL [Suspect]
     Indication: RHEUMATOID ARTHRITIS
     Route: 058
     Dates: start: 20050601

REACTIONS (5)
  - BENIGN NEOPLASM [None]
  - COUGH [None]
  - IMPAIRED HEALING [None]
  - KNEE OPERATION [None]
  - SKIN ULCER [None]
